FAERS Safety Report 4973654-9 (Version None)
Quarter: 2006Q2

REPORT INFORMATION
  Report Type: 
  Country: None (occurrence: None)
  Receive Date: 20060414
  Receipt Date: 20050718
  Transmission Date: 20061013
  Serious: Yes (Hospitalization)
  Sender: FDA-Public Use
  Company Number: US-MERCK-0507USA02276

PATIENT
  Age: 62 Year
  Sex: Female
  Weight: 86 kg

DRUGS (1)
  1. VIOXX [Suspect]
     Indication: ARTHRALGIA
     Route: 048
     Dates: start: 20000223, end: 20040901

REACTIONS (4)
  - ARTHROPATHY [None]
  - CEREBRAL INFARCTION [None]
  - VISION BLURRED [None]
  - VISUAL FIELD DEFECT [None]
